FAERS Safety Report 21084764 (Version 1)
Quarter: 2022Q3

REPORT INFORMATION
  Report Type: Spontaneous
  Country: US (occurrence: US)
  Receive Date: 20220714
  Receipt Date: 20220714
  Transmission Date: 20221027
  Serious: No
  Sender: FDA-Public Use
  Company Number: US-ALKERMES INC.-ALK-2022-003410

PATIENT
  Sex: Male

DRUGS (3)
  1. VIVITROL [Suspect]
     Active Substance: NALTREXONE
     Indication: Alcoholism
     Dosage: 380 MICROGRAM, QMO
     Route: 030
     Dates: start: 20220706
  2. VIVITROL [Suspect]
     Active Substance: NALTREXONE
     Dosage: 380 MICROGRAM, QMO
     Route: 030
     Dates: start: 202204, end: 202204
  3. VIVITROL [Suspect]
     Active Substance: NALTREXONE
     Dosage: 380 MICROGRAM, QMO
     Route: 030
     Dates: start: 20210924, end: 20210924

REACTIONS (2)
  - Product dose omission issue [Not Recovered/Not Resolved]
  - Alcoholism [Recovered/Resolved]

NARRATIVE: CASE EVENT DATE: 20220101
